FAERS Safety Report 9135258 (Version 1)
Quarter: 2013Q1

REPORT INFORMATION
  Report Type: Spontaneous
  Country: US (occurrence: US)
  Receive Date: 20130304
  Receipt Date: 20130304
  Transmission Date: 20140127
  Serious: No
  Sender: FDA-Public Use
  Company Number: US-ALLERGAN-1202200US

PATIENT
  Age: 15 Year
  Sex: Male

DRUGS (1)
  1. TAZORAC [Suspect]
     Indication: ACNE
     Dosage: APPLY TO FACE, CHIN AND JAWLINE ONCE DAILY
     Route: 061

REACTIONS (1)
  - Lip swelling [Not Recovered/Not Resolved]
